FAERS Safety Report 5502495-9 (Version None)
Quarter: 2007Q4

REPORT INFORMATION
  Report Type: 
  Country: None (occurrence: None)
  Receive Date: 20071030
  Receipt Date: 20071018
  Transmission Date: 20080405
  Serious: Yes (Other)
  Sender: FDA-Public Use
  Company Number: CA-PFIZER INC-2007088807

PATIENT
  Age: 61 Year
  Sex: Male

DRUGS (2)
  1. LYRICA [Suspect]
     Indication: BACK PAIN
     Route: 048
  2. LIPITOR [Concomitant]
     Route: 048

REACTIONS (4)
  - DIARRHOEA [None]
  - HEPATOTOXICITY [None]
  - NEOPLASM MALIGNANT [None]
  - URINE COLOUR ABNORMAL [None]
